FAERS Safety Report 17269875 (Version 2)
Quarter: 2020Q1

REPORT INFORMATION
  Report Type: Spontaneous
  Country: CA (occurrence: CA)
  Receive Date: 20200114
  Receipt Date: 20200227
  Transmission Date: 20200409
  Serious: Yes (Other)
  Sender: FDA-Public Use
  Company Number: CA-PFIZER INC-2017009417

PATIENT
  Age: 37 Year
  Sex: Female
  Weight: 64 kg

DRUGS (15)
  1. VALSARTAN. [Concomitant]
     Active Substance: VALSARTAN
     Indication: HYPERTENSION
     Dosage: 80 MG, 1X/DAY
     Route: 048
     Dates: end: 2017
  2. ORTHO EVRA [Concomitant]
     Active Substance: ETHINYL ESTRADIOL\NORELGESTROMIN
     Indication: OESTROGEN REPLACEMENT THERAPY
  3. OLESTYR [Concomitant]
     Active Substance: CHOLESTYRAMINE
     Dosage: 4 MG, 1X/DAY
  4. METOPROLOL. [Concomitant]
     Active Substance: METOPROLOL
     Dosage: 200 MG, DAILY
     Route: 048
  5. GENOTROPIN [Suspect]
     Active Substance: SOMATROPIN
     Dosage: 0.6 MG, 1X/DAY
     Route: 058
  6. CORTEF [Concomitant]
     Active Substance: HYDROCORTISONE
     Dosage: 2.5 MG, 2X/DAY (AM AND PM)
     Route: 048
  7. ORTHO EVRA [Concomitant]
     Active Substance: ETHINYL ESTRADIOL\NORELGESTROMIN
     Indication: CONTRACEPTION
     Dosage: UNK, CYCLIC (CHANGE OF PATCH WEEKLY DURING 12 WEEKS, STOP DURING 1 WEEK)
  8. CORTISOL [Concomitant]
     Active Substance: HYDROCORTISONE
     Dosage: 5 MG, 1X/DAY
  9. SYNTHROID [Concomitant]
     Active Substance: LEVOTHYROXINE SODIUM
     Indication: THYROID HORMONE REPLACEMENT THERAPY
     Dosage: 88 UG, 1X/DAY
     Route: 048
  10. GENOTROPIN [Suspect]
     Active Substance: SOMATROPIN
     Dosage: 0.8 MG, DAILY
     Route: 058
     Dates: start: 201612
  11. VITAMIN D /00107901/ [Concomitant]
     Active Substance: ERGOCALCIFEROL
     Dosage: 1000 IU, 1X/DAY
     Route: 048
  12. VALSARTAN. [Concomitant]
     Active Substance: VALSARTAN
     Dosage: 160 MG, 1X/DAY
     Route: 048
     Dates: start: 2017
  13. OMEGA-3 /01866101/ [Concomitant]
     Active Substance: OMEGA-3 FATTY ACIDS
     Dosage: 2000 MG, 1X/DAY
     Route: 048
  14. ADVIL [Concomitant]
     Active Substance: IBUPROFEN
     Dosage: 200 MG, AS NEEDED (EVERY 4 HOURS)
     Route: 048
  15. GENOTROPIN [Suspect]
     Active Substance: SOMATROPIN
     Indication: GROWTH HORMONE DEFICIENCY
     Dosage: 0.6 MG, DAILY
     Route: 058
     Dates: start: 20160610, end: 201612

REACTIONS (13)
  - Peripheral swelling [Unknown]
  - Therapeutic response unexpected [Unknown]
  - Pituitary tumour benign [Unknown]
  - Rosacea [Unknown]
  - Sensitivity to weather change [Unknown]
  - Injection site pain [Unknown]
  - Arthralgia [Unknown]
  - Blood prolactin increased [Unknown]
  - Blood pressure increased [Recovered/Resolved]
  - Pre-existing condition improved [Unknown]
  - Blood potassium decreased [Unknown]
  - Joint stiffness [Unknown]
  - Hypoaesthesia [Unknown]

NARRATIVE: CASE EVENT DATE: 20160610
